FAERS Safety Report 23389011 (Version 1)
Quarter: 2024Q1

REPORT INFORMATION
  Report Type: Spontaneous
  Country: IL (occurrence: IL)
  Receive Date: 20240110
  Receipt Date: 20240110
  Transmission Date: 20240410
  Serious: Yes (Hospitalization)
  Sender: FDA-Public Use
  Company Number: IL-AMERICAN REGENT INC-2024000055

PATIENT
  Sex: Female

DRUGS (2)
  1. FERINJECT [Suspect]
     Active Substance: FERRIC CARBOXYMALTOSE
     Indication: Haemoglobin decreased
     Dosage: 1000 MILLIGRAM, SINGLE
     Dates: start: 20231231, end: 20231231
  2. UNSPECIFIED INGREDIENT [Concomitant]
     Active Substance: UNSPECIFIED INGREDIENT
     Indication: Maternal therapy to enhance foetal lung maturity
     Dosage: UNK, 3RD OUT OF 4 INJECTIONS
     Dates: start: 20231231

REACTIONS (15)
  - Sciatica [Recovering/Resolving]
  - Lip dry [Recovering/Resolving]
  - Helplessness [Recovering/Resolving]
  - Feeling hot [Recovering/Resolving]
  - Loss of consciousness [Recovering/Resolving]
  - Coccydynia [Recovering/Resolving]
  - Erythema [Recovering/Resolving]
  - Swelling face [Recovering/Resolving]
  - Headache [Recovering/Resolving]
  - Dyspnoea [Recovering/Resolving]
  - Chest pain [Recovering/Resolving]
  - Vomiting [Recovering/Resolving]
  - Dizziness [Recovering/Resolving]
  - Heart rate increased [Recovering/Resolving]
  - Maternal exposure during pregnancy [Unknown]

NARRATIVE: CASE EVENT DATE: 20231231
